FAERS Safety Report 4533526-0 (Version None)
Quarter: 2004Q4

REPORT INFORMATION
  Report Type: 
  Country: None (occurrence: None)
  Receive Date: 20041221
  Receipt Date: 20041215
  Transmission Date: 20050328
  Serious: Yes (Hospitalization)
  Sender: FDA-Public Use
  Company Number: US-JNJFOC-20041204330

PATIENT
  Sex: Female

DRUGS (21)
  1. DURAGESIC [Suspect]
     Route: 062
     Dates: start: 20010101
  2. CARBIDOPA [Concomitant]
     Dosage: 25/100 MG, 1 IN 24 HOUR, ORAL
     Route: 049
  3. CARDIZEM [Concomitant]
     Route: 049
  4. PROZAC [Concomitant]
     Route: 049
  5. NEURONTIN [Concomitant]
     Route: 049
  6. NITROQUICK [Concomitant]
     Route: 049
  7. ALBUTEROL [Concomitant]
     Route: 055
  8. COMBIVENT [Concomitant]
     Route: 055
  9. COMBIVENT [Concomitant]
     Route: 055
  10. MIGRIN-A [Concomitant]
     Route: 049
  11. LASIX [Concomitant]
     Route: 049
  12. ZOFIRAX [Concomitant]
     Route: 061
  13. KLOR-CON [Concomitant]
     Route: 049
  14. SOMA [Concomitant]
     Route: 049
  15. PREVACID [Concomitant]
     Route: 049
  16. LISINOPRIL [Concomitant]
     Route: 049
  17. SYNTHROID [Concomitant]
     Route: 049
  18. COUMADIN [Concomitant]
     Route: 049
  19. PERCOCET [Concomitant]
     Route: 049
  20. PERCOCET [Concomitant]
     Dosage: 2 TABLETS 6 TIMES DAILY
     Route: 049
  21. METOCLOPRAMIDE [Concomitant]
     Indication: NAUSEA
     Route: 049

REACTIONS (5)
  - ABDOMINAL PAIN UPPER [None]
  - BACK PAIN [None]
  - BRONCHITIS [None]
  - FALL [None]
  - PAIN [None]
